FAERS Safety Report 7419414-0 (Version None)
Quarter: 2011Q2

REPORT INFORMATION
  Report Type: 
  Country: None (occurrence: None)
  Receive Date: 20110417
  Receipt Date: 20110411
  Transmission Date: 20111010
  Serious: Yes (Hospitalization)
  Sender: FDA-Public Use
  Company Number: DE-BRISTOL-MYERS SQUIBB COMPANY-15609282

PATIENT
  Age: 71 Year
  Sex: Male
  Weight: 146 kg

DRUGS (3)
  1. CETUXIMAB [Suspect]
     Dosage: LAST DOSE ON 03MAR2011
     Dates: start: 20110106
  2. GEMZAR [Suspect]
     Dosage: LAST INF(6TH INF)ON 24FEB2011
     Dates: start: 20110106
  3. CARBOPLATIN [Suspect]
     Dosage: 1DF=AUC5 LAST INF(3RD INF) ON 17FEB2011
     Dates: start: 20110106

REACTIONS (1)
  - ANAEMIA [None]
